FAERS Safety Report 19537679 (Version 1)
Quarter: 2021Q3

REPORT INFORMATION
  Report Type: Spontaneous
  Country: US (occurrence: US)
  Receive Date: 20210713
  Receipt Date: 20210713
  Transmission Date: 20211014
  Serious: No
  Sender: FDA-Public Use
  Company Number: US-SA-2021SA223947

PATIENT
  Sex: Male

DRUGS (2)
  1. SELSUN BLUE [Suspect]
     Active Substance: SELENIUM SULFIDE
     Indication: PRURITUS
  2. SELSUN BLUE [Suspect]
     Active Substance: SELENIUM SULFIDE
     Indication: SKIN EXFOLIATION

REACTIONS (3)
  - Alopecia [Unknown]
  - Swelling [Unknown]
  - Erythema [Unknown]
